FAERS Safety Report 4539178-8 (Version None)
Quarter: 2004Q4

REPORT INFORMATION
  Report Type: 
  Country: None (occurrence: None)
  Receive Date: 20041227
  Receipt Date: 20041227
  Transmission Date: 20050328
  Serious: Yes (Other)
  Sender: FDA-Public Use
  Company Number: None

PATIENT
  Age: 62 Year
  Sex: Female

DRUGS (17)
  1. ZITHROMAX [Suspect]
     Indication: COUGH
     Dosage: 500  MG
     Dates: start: 20041213, end: 20041215
  2. ZITHROMAX [Suspect]
     Indication: PERTUSSIS
     Dosage: 500  MG
     Dates: start: 20041213, end: 20041215
  3. LEXAPRO [Concomitant]
  4. AMITRIPYTLINE [Concomitant]
  5. METHOTREXATE [Concomitant]
  6. ALLOPURINOL [Concomitant]
  7. HYDROXYZINE [Concomitant]
  8. FOLIC ACID [Concomitant]
  9. HYDROCHLOROTHIAZIDE [Concomitant]
  10. LISINOPRIL [Concomitant]
  11. METOPROLOL [Concomitant]
  12. ISOSORBIDE DINITRATE [Concomitant]
  13. GLYBURIDE [Concomitant]
  14. TYLENOL W/ CODEINE NO. 4 [Concomitant]
  15. AMBIEN [Concomitant]
  16. FLEXERIL [Concomitant]
  17. DILTIAZEM HCL [Concomitant]

REACTIONS (1)
  - URTICARIA [None]
